FAERS Safety Report 6099035-5 (Version None)
Quarter: 2009Q1

REPORT INFORMATION
  Report Type: 
  Country: None (occurrence: None)
  Receive Date: 20090302
  Receipt Date: 20090220
  Transmission Date: 20090719
  Serious: Yes (Other)
  Sender: FDA-Public Use
  Company Number: GB-PFIZER INC-2009174675

PATIENT

DRUGS (1)
  1. DEPO-MEDRONE [Suspect]
     Dosage: 80 MG, SINGLE

REACTIONS (3)
  - ANXIETY [None]
  - MENTAL DISORDER [None]
  - PARANOIA [None]
